FAERS Safety Report 8167036-9 (Version None)
Quarter: 2012Q1

REPORT INFORMATION
  Report Type: 
  Country: None (occurrence: None)
  Receive Date: 20120227
  Receipt Date: 20120224
  Transmission Date: 20120608
  Serious: Yes (Other)
  Sender: FDA-Public Use
  Company Number: US-PFIZER INC-2012049995

PATIENT
  Sex: Female
  Weight: 68.027 kg

DRUGS (10)
  1. CHANTIX [Suspect]
     Dosage: 0.5 MG, 2X/DAY
     Route: 048
     Dates: start: 20100601, end: 20100601
  2. CHANTIX [Suspect]
     Indication: SMOKING CESSATION THERAPY
     Dosage: 0.5 MG, 1X/DAY
     Route: 048
     Dates: start: 20100601, end: 20100601
  3. SIMVASTATIN [Concomitant]
     Indication: BLOOD CHOLESTEROL INCREASED
     Dosage: UNK
  4. CHANTIX [Suspect]
     Dosage: 0.5 MG, 1X/DAY
     Route: 048
     Dates: start: 20111031, end: 20111101
  5. CHANTIX [Suspect]
     Dosage: UNK
     Route: 048
     Dates: start: 20111101
  6. NEXIUM [Concomitant]
     Indication: DYSPEPSIA
     Dosage: UNK
  7. VESICARE [Concomitant]
     Indication: BLADDER DISORDER
     Dosage: UNK
  8. CIPROFLOXACIN [Concomitant]
     Indication: CYSTITIS
     Dosage: UNK
  9. ADVAIR DISKUS 100/50 [Concomitant]
     Dosage: UNK, 2X/DAY
  10. COMBIVENT [Concomitant]
     Dosage: UNK

REACTIONS (7)
  - DEPRESSION [None]
  - MUSCLE SPASMS [None]
  - NERVE INJURY [None]
  - PERSONALITY DISORDER [None]
  - INTERVERTEBRAL DISC DISORDER [None]
  - ANGER [None]
  - MIDDLE INSOMNIA [None]
